FAERS Safety Report 20522618 (Version 1)
Quarter: 2022Q1

REPORT INFORMATION
  Report Type: Spontaneous
  Country: US (occurrence: US)
  Receive Date: 20220226
  Receipt Date: 20220226
  Transmission Date: 20220423
  Serious: Yes (Other)
  Sender: FDA-Public Use
  Company Number: US-NOVARTISPH-NVSC2022US045664

PATIENT
  Sex: Female

DRUGS (4)
  1. RANITIDINE [Suspect]
     Active Substance: RANITIDINE
     Dosage: 300 MG,,WEEKLY,
     Route: 048
     Dates: start: 201201, end: 201506
  2. RANITIDINE [Suspect]
     Active Substance: RANITIDINE
     Indication: Dyspepsia
  3. RANITIDINE [Suspect]
     Active Substance: RANITIDINE
     Dosage: 300 MG,,WEEKLY,
     Route: 048
     Dates: start: 201201, end: 201506
  4. RANITIDINE [Suspect]
     Active Substance: RANITIDINE
     Indication: Dyspepsia

REACTIONS (8)
  - Bladder cancer [Unknown]
  - Colorectal cancer [Unknown]
  - Lung neoplasm malignant [Unknown]
  - Gastric cancer [Unknown]
  - Brain neoplasm malignant [Unknown]
  - Incorrect dose administered [Unknown]
  - Inappropriate schedule of product administration [Unknown]
  - Product use in unapproved indication [Unknown]
